FAERS Safety Report 8421100-5 (Version None)
Quarter: 2012Q2

REPORT INFORMATION
  Report Type: 
  Country: None (occurrence: None)
  Receive Date: 20120604
  Receipt Date: 20120604
  Transmission Date: 20120825
  Serious: Yes (Disabling)
  Sender: FDA-Public Use
  Company Number: None

PATIENT
  Age: 54 Year
  Sex: Female
  Weight: 58.9676 kg

DRUGS (2)
  1. LYRICA [Suspect]
     Indication: NECK PAIN
     Dosage: 100 MG TID PO
     Route: 048
     Dates: start: 20051128, end: 20120312
  2. LYRICA [Suspect]
     Indication: NEURALGIA
     Dosage: 100 MG TID PO
     Route: 048
     Dates: start: 20051128, end: 20120312

REACTIONS (4)
  - APPARENT DEATH [None]
  - TORTICOLLIS [None]
  - BEDRIDDEN [None]
  - PAIN [None]
